FAERS Safety Report 5806491-3 (Version None)
Quarter: 2008Q3

REPORT INFORMATION
  Report Type: 
  Country: None (occurrence: None)
  Receive Date: 20080710
  Receipt Date: 20080630
  Transmission Date: 20090109
  Serious: Yes (Life-Threatening, Other)
  Sender: FDA-Public Use
  Company Number: US-PFIZER INC-2008055309

PATIENT
  Sex: Female

DRUGS (1)
  1. DOXYCYCLINE HCL [Suspect]
     Indication: ACNE
     Route: 048

REACTIONS (2)
  - HYPERSENSITIVITY [None]
  - PNEUMONITIS [None]
